FAERS Safety Report 5737714-7 (Version None)
Quarter: 2008Q2

REPORT INFORMATION
  Report Type: 
  Country: None (occurrence: None)
  Receive Date: 20080514
  Receipt Date: 20080505
  Transmission Date: 20081010
  Serious: Yes (Congenital Anomaly)
  Sender: FDA-Public Use
  Company Number: A0680664A

PATIENT
  Sex: Female

DRUGS (6)
  1. PAXIL CR [Suspect]
     Indication: DEPRESSION
     Dosage: 25MG PER DAY
     Dates: start: 20021001, end: 20030101
  2. VITAMIN TAB [Concomitant]
  3. CARISOPRODOL [Concomitant]
     Indication: FIBROMYALGIA
     Dates: start: 20010101, end: 20050101
  4. LORTAB [Concomitant]
     Indication: MIGRAINE
     Dates: start: 20030101, end: 20050101
  5. ALPRAZOLAM [Concomitant]
     Indication: ANXIETY
     Dates: start: 20020101, end: 20060101
  6. LORAZEPAM [Concomitant]

REACTIONS (6)
  - ATRIOVENTRICULAR SEPTAL DEFECT [None]
  - DEVELOPMENTAL DELAY [None]
  - DRUG EXPOSURE DURING PREGNANCY [None]
  - MULTIPLE CONGENITAL ABNORMALITIES [None]
  - SPEECH DISORDER DEVELOPMENTAL [None]
  - VENTRICULAR SEPTAL DEFECT [None]
